FAERS Safety Report 9377135 (Version 1)
Quarter: 2013Q2

REPORT INFORMATION
  Report Type: Spontaneous
  Country: US (occurrence: None)
  Receive Date: 20130628
  Receipt Date: 20130628
  Transmission Date: 20140414
  Serious: Yes (Hospitalization)
  Sender: FDA-Public Use
  Company Number: None

PATIENT
  Age: 49 Year
  Sex: Male
  Weight: 80.74 kg

DRUGS (2)
  1. TRUVADA [Suspect]
     Indication: UNEVALUABLE EVENT
     Route: 048
     Dates: start: 2009
  2. ISENTRESS [Suspect]
     Route: 048
     Dates: start: 2009

REACTIONS (1)
  - Renal failure [None]
